FAERS Safety Report 9034054 (Version 1)
Quarter: 2013Q1

REPORT INFORMATION
  Report Type: Spontaneous
  Country: US (occurrence: None)
  Receive Date: 20130116
  Receipt Date: 20130116
  Transmission Date: 20140127
  Serious: Yes (Other)
  Sender: FDA-Public Use
  Company Number: None

PATIENT
  Sex: Female
  Weight: 52.16 kg

DRUGS (5)
  1. SYMBICORT [Suspect]
     Dosage: INHALE 2 PUFFS TWICE A DAY
     Dates: start: 20121212, end: 20121216
  2. PREMARIN VAGINAL CREAM [Concomitant]
  3. EVISTA [Concomitant]
  4. L-THYROXINE (SYNTHROID) [Concomitant]
  5. LIOTHYRONINE [Concomitant]

REACTIONS (3)
  - Tic [None]
  - Tachycardia [None]
  - Dizziness [None]
